FAERS Safety Report 5977713-3 (Version None)
Quarter: 2008Q4

REPORT INFORMATION
  Report Type: 
  Country: None (occurrence: None)
  Receive Date: 20081201
  Receipt Date: 20081201
  Transmission Date: 20090506
  Serious: Yes (Hospitalization)
  Sender: FDA-Public Use
  Company Number: None

PATIENT
  Age: 59 Year
  Sex: Female
  Weight: 59.8748 kg

DRUGS (2)
  1. EFFEXOR XR [Suspect]
     Indication: HOT FLUSH
     Dosage: 150 MG DAILY PO
     Route: 048
     Dates: start: 20080821, end: 20081112
  2. EFFEXOR XR [Suspect]
     Indication: NIGHT SWEATS
     Dosage: 150 MG DAILY PO
     Route: 048
     Dates: start: 20080821, end: 20081112

REACTIONS (7)
  - ASTHENIA [None]
  - DIZZINESS [None]
  - DRUG INEFFECTIVE [None]
  - HEART RATE IRREGULAR [None]
  - HYPERTENSION [None]
  - MALAISE [None]
  - SUPRAVENTRICULAR TACHYCARDIA [None]
